FAERS Safety Report 4753505-8 (Version None)
Quarter: 2005Q3

REPORT INFORMATION
  Report Type: 
  Country: None (occurrence: None)
  Receive Date: 20050824
  Receipt Date: 20050810
  Transmission Date: 20060218
  Serious: Yes (Other)
  Sender: FDA-Public Use
  Company Number: US_0508120790

PATIENT
  Sex: Female

DRUGS (1)
  1. EVISTA [Suspect]
     Indication: BREAST CANCER
     Dates: start: 19980101

REACTIONS (2)
  - BREAST CANCER METASTATIC [None]
  - DRUG INEFFECTIVE [None]
